FAERS Safety Report 9014257 (Version 4)
Quarter: 2013Q1

REPORT INFORMATION
  Report Type: Spontaneous
  Country: CA (occurrence: CA)
  Receive Date: 20130115
  Receipt Date: 20130306
  Transmission Date: 20140127
  Serious: Yes (Hospitalization, Other)
  Sender: FDA-Public Use
  Company Number: CA-ROCHE-1178352

PATIENT
  Age: 41 Year
  Sex: Male

DRUGS (5)
  1. XOLAIR [Suspect]
     Indication: ASTHMA
     Route: 058
     Dates: start: 20120105
  2. ADVAIR [Concomitant]
  3. SALBUTAMOL [Concomitant]
  4. SINGULAIR [Concomitant]
  5. COLOFAC [Concomitant]
     Route: 065
     Dates: start: 20130117

REACTIONS (13)
  - Colitis [Unknown]
  - Lung infection [Recovered/Resolved]
  - Respiratory disorder [Unknown]
  - Back pain [Unknown]
  - Injury [Unknown]
  - Muscle spasms [Unknown]
  - Nasopharyngitis [Recovered/Resolved]
  - Nasal congestion [Recovered/Resolved]
  - Blood pressure diastolic increased [Unknown]
  - Sneezing [Unknown]
  - Rhinorrhoea [Unknown]
  - Weight increased [Not Recovered/Not Resolved]
  - Fatigue [Unknown]
